FAERS Safety Report 7392709-5 (Version None)
Quarter: 2011Q2

REPORT INFORMATION
  Report Type: 
  Country: None (occurrence: None)
  Receive Date: 20110404
  Receipt Date: 20110328
  Transmission Date: 20111010
  Serious: Yes (Other)
  Sender: FDA-Public Use
  Company Number: DE-PFIZER INC-2005011983

PATIENT
  Age: 56 Year
  Sex: Female

DRUGS (2)
  1. EPIRUBICIN HYDROCHLORIDE [Suspect]
     Indication: BREAST CANCER METASTATIC
     Dosage: 106 MG CYCLIC
     Route: 042
     Dates: start: 20041126, end: 20041126
  2. TAXOL [Suspect]
     Indication: BREAST CANCER METASTATIC
     Dosage: 300 MG CYCLIC
     Route: 042
     Dates: start: 20041126, end: 20041126

REACTIONS (2)
  - PAIN IN EXTREMITY [None]
  - POLYNEUROPATHY [None]
